FAERS Safety Report 7820679-1 (Version None)
Quarter: 2011Q4

REPORT INFORMATION
  Report Type: 
  Country: None (occurrence: None)
  Receive Date: 20111013
  Receipt Date: 20110804
  Transmission Date: 20120403
  Serious: Yes (Hospitalization)
  Sender: FDA-Public Use
  Company Number: OMPQ-NO-1108S-0763

PATIENT
  Age: 71 Year
  Sex: Male
  Weight: 65 kg

DRUGS (1)
  1. OMNIPAQUE 70 [Suspect]
     Indication: PRODUCT USED FOR UNKNOWN INDICATION
     Dosage: 70 ML, SINGLE DOSE, INTRAVENOUS
     Route: 042
     Dates: start: 20110620, end: 20110620

REACTIONS (10)
  - BLOOD TEST ABNORMAL [None]
  - IMPAIRED DRIVING ABILITY [None]
  - BLOOD PRESSURE DECREASED [None]
  - NAUSEA [None]
  - FALL [None]
  - VOMITING [None]
  - PAIN [None]
  - LOSS OF CONSCIOUSNESS [None]
  - HYPOTENSION [None]
  - CHILLS [None]
